APPROVED DRUG PRODUCT: ZOSYN
Active Ingredient: PIPERACILLIN SODIUM; TAZOBACTAM SODIUM
Strength: EQ 4GM BASE/VIAL;EQ 500MG BASE/VIAL **Federal Register determination that product was not discontinued or withdrawn for safety or effectiveness reasons**
Dosage Form/Route: INJECTABLE;INJECTION
Application: N050684 | Product #003
Applicant: WYETH PHARMACEUTICALS LLC
Approved: Oct 22, 1993 | RLD: Yes | RS: No | Type: DISCN